FAERS Safety Report 9094157 (Version 1)
Quarter: 2013Q1

REPORT INFORMATION
  Report Type: Spontaneous
  Country: FR (occurrence: FR)
  Receive Date: 20130219
  Receipt Date: 20130219
  Transmission Date: 20140127
  Serious: Yes (Death)
  Sender: FDA-Public Use
  Company Number: FR-TEVA-386679ISR

PATIENT
  Age: 65 Year
  Sex: Female

DRUGS (3)
  1. FLUOROURACIL [Suspect]
     Indication: CHEMOTHERAPY
     Route: 042
     Dates: start: 20120710, end: 20120712
  2. OXALIPLATIN TEVA [Concomitant]
     Indication: CHEMOTHERAPY
     Dosage: 1-DAY-TREATMENT
     Route: 042
     Dates: start: 20120710, end: 20120710
  3. CALCIUM FOLINATE [Concomitant]
     Indication: CHEMOTHERAPY
     Route: 042
     Dates: start: 20120710

REACTIONS (10)
  - Septic shock [Fatal]
  - Mucosal inflammation [Fatal]
  - Aplasia [Fatal]
  - Renal failure [Fatal]
  - Vulvovaginitis [Unknown]
  - Diarrhoea [Unknown]
  - Skin toxicity [Unknown]
  - Nausea [Unknown]
  - Nervous system disorder [Unknown]
  - Hyperthermia [Unknown]
